FAERS Safety Report 5875286-7 (Version None)
Quarter: 2008Q3

REPORT INFORMATION
  Report Type: 
  Country: None (occurrence: None)
  Receive Date: 20080909
  Receipt Date: 20080902
  Transmission Date: 20090109
  Serious: Yes (Other)
  Sender: FDA-Public Use
  Company Number: IE-MERCK-0806GBR00063

PATIENT
  Age: 13 Year
  Sex: Male

DRUGS (2)
  1. SINGULAIR [Suspect]
     Indication: ASTHMA
     Route: 048
  2. SINGULAIR [Suspect]
     Indication: RHINITIS
     Route: 048

REACTIONS (2)
  - AFFECTIVE DISORDER [None]
  - NIGHTMARE [None]
